FAERS Safety Report 8479731-2 (Version None)
Quarter: 2012Q2

REPORT INFORMATION
  Report Type: 
  Country: None (occurrence: None)
  Receive Date: 20120629
  Receipt Date: 20120620
  Transmission Date: 20120825
  Serious: Yes (Other)
  Sender: FDA-Public Use
  Company Number: US-CELGENEUS-163-21880-12062987

PATIENT
  Sex: Female

DRUGS (9)
  1. DEXAMETHASONE [Concomitant]
     Indication: MULTIPLE MYELOMA
     Route: 065
     Dates: start: 20110701
  2. GLIPIZIDE [Concomitant]
     Route: 065
  3. LOVASTATIN [Concomitant]
     Route: 065
  4. GLARGINE INSULIN [Concomitant]
     Route: 065
  5. REVLIMID [Suspect]
     Indication: MULTIPLE MYELOMA
     Dosage: 15 MILLIGRAM
     Route: 048
     Dates: start: 20110701, end: 20120201
  6. LISINOPRIL [Concomitant]
     Route: 065
  7. PRAMIPEXOLE DIHYCHLORIDE [Concomitant]
     Route: 065
  8. OMEPRAZOLE [Concomitant]
     Route: 065
  9. ATENOLOL [Concomitant]
     Route: 065

REACTIONS (3)
  - THROMBOCYTOPENIA [None]
  - NEUTROPENIA [None]
  - DEMENTIA [None]
